FAERS Safety Report 5823483-9 (Version None)
Quarter: 2008Q3

REPORT INFORMATION
  Report Type: 
  Country: None (occurrence: None)
  Receive Date: 20080725
  Receipt Date: 20080718
  Transmission Date: 20090109
  Serious: Yes (Other)
  Sender: FDA-Public Use
  Company Number: CY-ELI_LILLY_AND_COMPANY-CY200806001641

PATIENT
  Age: 72 Year
  Sex: Male

DRUGS (2)
  1. CIALIS [Suspect]
     Indication: ERECTILE DYSFUNCTION
     Dosage: 20 MG, UNKNOWN
     Route: 065
  2. HYDROCHLOROTHIAZIDE [Concomitant]
     Dosage: 25 MG, UNKNOWN
     Route: 048

REACTIONS (1)
  - GLAUCOMA [None]
